FAERS Safety Report 6237531-8 (Version None)
Quarter: 2009Q2

REPORT INFORMATION
  Report Type: 
  Country: None (occurrence: None)
  Receive Date: 20090619
  Receipt Date: 20090609
  Transmission Date: 20091009
  Serious: Yes (Other)
  Sender: FDA-Public Use
  Company Number: FR-AMGEN-QUU350722

PATIENT
  Sex: Male

DRUGS (8)
  1. NEUPOGEN [Suspect]
     Indication: DRUG USE FOR UNKNOWN INDICATION
     Route: 042
     Dates: start: 20090514, end: 20090523
  2. PRIMPERAN [Suspect]
     Route: 042
  3. SPASFON [Suspect]
  4. IDARAC [Suspect]
     Dates: start: 20090514, end: 20090516
  5. ONDANSETRON HCL [Concomitant]
     Route: 042
     Dates: start: 20090514, end: 20090516
  6. CYTARABINE [Concomitant]
     Route: 042
     Dates: start: 20090514, end: 20090516
  7. CERUBIDINE [Concomitant]
     Route: 042
     Dates: start: 20090514, end: 20090516
  8. ROCEPHIN [Concomitant]
     Route: 042
     Dates: start: 20090510

REACTIONS (2)
  - CUTANEOUS VASCULITIS [None]
  - PURPURA [None]
